FAERS Safety Report 21937120 (Version 1)
Quarter: 2023Q1

REPORT INFORMATION
  Report Type: Spontaneous
  Country: US (occurrence: US)
  Receive Date: 20230201
  Receipt Date: 20230201
  Transmission Date: 20230418
  Serious: Yes (Other)
  Sender: FDA-Public Use
  Company Number: US-002147023-NVSC2023US021522

PATIENT
  Age: 75 Year
  Sex: Female

DRUGS (5)
  1. AZITHROMYCIN [Suspect]
     Active Substance: AZITHROMYCIN
     Indication: Mycobacterium avium complex infection
     Dosage: UNK
     Route: 065
  2. ETHAMBUTOL [Suspect]
     Active Substance: ETHAMBUTOL HYDROCHLORIDE
     Indication: Mycobacterium avium complex infection
     Dosage: UNK
     Route: 065
  3. RIFAMPIN [Suspect]
     Active Substance: RIFAMPIN
     Indication: Mycobacterium avium complex infection
     Dosage: UNK
     Route: 065
     Dates: start: 201506
  4. CLARITHROMYCIN [Concomitant]
     Active Substance: CLARITHROMYCIN
     Indication: Mycobacterium avium complex infection
     Dosage: UNK
     Route: 065
     Dates: start: 201506
  5. AMIKACIN [Concomitant]
     Active Substance: AMIKACIN
     Indication: Mycobacterium avium complex infection
     Dosage: UNK, AFTER 2-3 MONTHS
     Route: 042

REACTIONS (6)
  - Blindness [Unknown]
  - Mycobacterium avium complex infection [Unknown]
  - Pulmonary cavitation [Unknown]
  - Dyspnoea [Unknown]
  - Weight decreased [Unknown]
  - Rash [Unknown]
